FAERS Safety Report 20807397 (Version 5)
Quarter: 2023Q1

REPORT INFORMATION
  Report Type: Other
  Country: CA (occurrence: None)
  Receive Date: 20220510
  Receipt Date: 20230330
  Transmission Date: 20230418
  Serious: Yes (Hospitalization)
  Sender: FDA-Public Use
  Company Number: CA-ROCHE-2949313

PATIENT
  Age: 53 Year
  Sex: Male

DRUGS (9)
  1. OCREVUS [Suspect]
     Active Substance: OCRELIZUMAB
     Indication: Primary progressive multiple sclerosis
     Dosage: 300 MG AT DAY 0 AND 14, THEN 600 MG EVERY 6 MONTH
     Route: 042
     Dates: start: 20211027
  2. ANDROGEL [Concomitant]
     Active Substance: TESTOSTERONE
  3. RITALIN [Concomitant]
     Active Substance: METHYLPHENIDATE HYDROCHLORIDE
  4. AMANTADINE [Concomitant]
     Active Substance: AMANTADINE
  5. BACLOFEN [Concomitant]
     Active Substance: BACLOFEN
  6. MODERNA COVID-19 VACCINE [Concomitant]
     Active Substance: ELASOMERAN
     Dates: start: 20220720
  7. MODERNA COVID-19 VACCINE [Concomitant]
     Active Substance: ELASOMERAN
     Dates: start: 20220131
  8. MODERNA COVID-19 VACCINE [Concomitant]
     Active Substance: ELASOMERAN
     Dates: start: 20210527
  9. MODERNA COVID-19 VACCINE [Concomitant]
     Active Substance: ELASOMERAN
     Dates: start: 20210426

REACTIONS (7)
  - Cholelithiasis [Unknown]
  - Infusion related reaction [Recovered/Resolved]
  - Fatigue [Unknown]
  - Stress [Recovered/Resolved]
  - Balance disorder [Unknown]
  - Poor quality sleep [Unknown]
  - Tremor [Unknown]

NARRATIVE: CASE EVENT DATE: 20211027
